FAERS Safety Report 4451716-2 (Version None)
Quarter: 2004Q3

REPORT INFORMATION
  Report Type: 
  Country: None (occurrence: None)
  Receive Date: 20040915
  Receipt Date: 20040902
  Transmission Date: 20050211
  Serious: Yes (Life-Threatening, Hospitalization)
  Sender: FDA-Public Use
  Company Number: 2004225092JP

PATIENT
  Age: 13 Year
  Sex: Male
  Weight: 51 kg

DRUGS (3)
  1. GENOTROPIN [Suspect]
     Indication: RENAL FAILURE CHRONIC
     Dosage: 1.4 MG, QD, SUBCUTANEOUS
     Route: 058
     Dates: start: 20011004
  2. MIRADOL [Concomitant]
  3. LORAZEPAM [Concomitant]

REACTIONS (15)
  - ABDOMINAL PAIN [None]
  - ABNORMAL SENSATION IN EYE [None]
  - ANOREXIA [None]
  - CONVULSION [None]
  - DEPRESSION [None]
  - DIABETIC HYPEROSMOLAR COMA [None]
  - GLUCOSE TOLERANCE IMPAIRED [None]
  - GLYCOSYLATED HAEMOGLOBIN INCREASED [None]
  - HYPOGLYCAEMIA [None]
  - LOOSE STOOLS [None]
  - NAUSEA [None]
  - SENSE OF OPPRESSION [None]
  - SOMNOLENCE [None]
  - TETANY [None]
  - WEIGHT DECREASED [None]
